FAERS Safety Report 5737711-1 (Version None)
Quarter: 2008Q2

REPORT INFORMATION
  Report Type: 
  Country: None (occurrence: None)
  Receive Date: 20080514
  Receipt Date: 20080505
  Transmission Date: 20081010
  Serious: Yes (Congenital Anomaly)
  Sender: FDA-Public Use
  Company Number: A0680473A

PATIENT
  Sex: Male

DRUGS (7)
  1. PAXIL CR [Suspect]
     Dosage: 25MG PER DAY
     Dates: start: 20030101
  2. PAXIL [Suspect]
  3. VEETIDS [Concomitant]
  4. PENICILLIN VK [Concomitant]
  5. MACROBID [Concomitant]
  6. VITAMIN TAB [Concomitant]
  7. FOLIC ACID [Concomitant]
     Dates: start: 20030101

REACTIONS (7)
  - DEVELOPMENTAL DELAY [None]
  - DRUG EXPOSURE DURING PREGNANCY [None]
  - MULTIPLE CONGENITAL ABNORMALITIES [None]
  - RENAL DYSPLASIA [None]
  - RENAL FAILURE CHRONIC [None]
  - URINARY TRACT INFECTION [None]
  - VESICOURETERIC REFLUX [None]
